FAERS Safety Report 9291193 (Version 1)
Quarter: 2013Q2

REPORT INFORMATION
  Report Type: Spontaneous
  Country: DE (occurrence: DE)
  Receive Date: 20130515
  Receipt Date: 20130515
  Transmission Date: 20140414
  Serious: Yes (Congenital Anomaly)
  Sender: FDA-Public Use
  Company Number: GXKR2013DE001807

PATIENT
  Sex: 0

DRUGS (2)
  1. CITALOPRAM HEXAL [Suspect]
     Dosage: MATERNAL DOSE: 30 MG/D, GW0-28: 20 MG/D, STOPP GW4-6, FROM GW29: 10 MG/D, FROM GW37 UNTIL DELIVERY
     Route: 064
  2. FOLIO FORTE [Concomitant]
     Dosage: MATERNAL DOSE: 0.8 [MG/D (BIS 0.4) ]
     Route: 064

REACTIONS (4)
  - Congenital hydronephrosis [Recovering/Resolving]
  - Ureteric stenosis [Unknown]
  - Renal impairment [Not Recovered/Not Resolved]
  - Neonatal respiratory distress syndrome [Recovered/Resolved]
